FAERS Safety Report 6060043-1 (Version None)
Quarter: 2009Q1

REPORT INFORMATION
  Report Type: 
  Country: None (occurrence: None)
  Receive Date: 20090128
  Receipt Date: 20090116
  Transmission Date: 20090719
  Serious: Yes (Other)
  Sender: FDA-Public Use
  Company Number: 039291

PATIENT
  Age: 23 Year
  Sex: Female

DRUGS (2)
  1. CLARAVIS [Suspect]
     Dosage: 30 MG, BID, ORAL
     Route: 048
     Dates: start: 20081107
  2. NUVARING (ETONOGESTREL) [Concomitant]

REACTIONS (2)
  - PREGNANCY TEST FALSE POSITIVE [None]
  - TREATMENT NONCOMPLIANCE [None]
